FAERS Safety Report 5918765-6 (Version None)
Quarter: 2008Q4

REPORT INFORMATION
  Report Type: 
  Country: None (occurrence: None)
  Receive Date: 20081015
  Receipt Date: 20080812
  Transmission Date: 20090506
  Serious: No
  Sender: FDA-Public Use
  Company Number: US-ASTRAZENECA-2008UW16503

PATIENT
  Sex: Male

DRUGS (2)
  1. SYMBICORT [Suspect]
     Indication: ASTHMA
     Dosage: 160/4.5 UG
     Route: 055
     Dates: start: 20080601
  2. SINGULAIR [Concomitant]

REACTIONS (2)
  - DRUG EFFECT DECREASED [None]
  - PAINFUL RESPIRATION [None]
